FAERS Safety Report 24301880 (Version 1)
Quarter: 2024Q3

REPORT INFORMATION
  Report Type: Report from Study
  Country: SG (occurrence: SG)
  Receive Date: 20240910
  Receipt Date: 20240910
  Transmission Date: 20241017
  Serious: Yes (Death, Other)
  Sender: ROCHE
  Company Number: SG-ROCHE-10000075045

PATIENT

DRUGS (5)
  1. MYCOPHENOLATE MOFETIL [Suspect]
     Active Substance: MYCOPHENOLATE MOFETIL
     Indication: Prophylaxis against transplant rejection
     Route: 065
  2. CYCLOSPORINE [Suspect]
     Active Substance: CYCLOSPORINE
     Indication: Prophylaxis against transplant rejection
     Route: 065
  3. AZATHIOPRINE [Suspect]
     Active Substance: AZATHIOPRINE
     Indication: Prophylaxis against transplant rejection
     Route: 065
  4. TACROLIMUS [Suspect]
     Active Substance: TACROLIMUS
     Indication: Prophylaxis against transplant rejection
     Route: 065
  5. PREDNISOLONE [Suspect]
     Active Substance: PREDNISOLONE
     Indication: Prophylaxis against transplant rejection
     Route: 065

REACTIONS (11)
  - Renal cell carcinoma [Fatal]
  - Prostate cancer [Fatal]
  - Transitional cell carcinoma metastatic [Fatal]
  - Clear cell renal cell carcinoma [Unknown]
  - Papillary renal cell carcinoma [Unknown]
  - Lung neoplasm malignant [Fatal]
  - Penile squamous cell carcinoma [Fatal]
  - Colorectal cancer metastatic [Fatal]
  - Bladder transitional cell carcinoma [Unknown]
  - Sepsis [Unknown]
  - Scrotal cancer [Fatal]
